FAERS Safety Report 18631942 (Version 2)
Quarter: 2021Q1

REPORT INFORMATION
  Report Type: Report from Study
  Country: PA (occurrence: PA)
  Receive Date: 20201217
  Receipt Date: 20210122
  Transmission Date: 20210419
  Serious: Yes (Other)
  Sender: FDA-Public Use
  Company Number: PA-JNJFOC-20201027028

PATIENT
  Age: 22 Year
  Sex: Male
  Weight: 78 kg

DRUGS (5)
  1. LAMOTRIGINA [Concomitant]
     Active Substance: LAMOTRIGINE
     Route: 065
  2. REXULTI [Concomitant]
     Active Substance: BREXPIPRAZOLE
     Route: 048
  3. PRISTIQ EXTENDED?RELEASE [Concomitant]
     Active Substance: DESVENLAFAXINE SUCCINATE
  4. SPRAVATO [Suspect]
     Active Substance: ESKETAMINE
     Indication: DEPRESSION
     Dates: start: 20201013
  5. ANGINOVAG [Concomitant]
     Indication: STOMATITIS
     Route: 065

REACTIONS (20)
  - Fear [Unknown]
  - Dizziness [Recovered/Resolved]
  - Decreased appetite [Unknown]
  - Dissociation [Unknown]
  - Feeling abnormal [Recovered/Resolved]
  - Anxiety [Unknown]
  - Malaise [Unknown]
  - Erythema [Recovered/Resolved]
  - Hyperacusis [Recovered/Resolved]
  - Hallucination [Recovered/Resolved]
  - Somnolence [Recovered/Resolved]
  - Initial insomnia [Unknown]
  - Negative thoughts [Unknown]
  - Tremor [Unknown]
  - Speech disorder [Unknown]
  - Sensory disturbance [Unknown]
  - Stomatitis [Recovering/Resolving]
  - Fatigue [Recovered/Resolved]
  - Pharyngeal ulceration [Not Recovered/Not Resolved]
  - Nausea [Recovered/Resolved]

NARRATIVE: CASE EVENT DATE: 202010
